FAERS Safety Report 13762347 (Version 2)
Quarter: 2017Q3

REPORT INFORMATION
  Report Type: Report from Study
  Country: JP (occurrence: JP)
  Receive Date: 20170718
  Receipt Date: 20170901
  Transmission Date: 20171127
  Serious: Yes (Death, Other)
  Sender: FDA-Public Use
  Company Number: JP-ACTELION-A-CH2017-149808

PATIENT
  Age: 57 Year
  Sex: Female

DRUGS (18)
  1. CADEX [Concomitant]
  2. PREDNISOLONE. [Concomitant]
     Active Substance: PREDNISOLONE
  3. BONALON [Concomitant]
     Active Substance: ALENDRONATE SODIUM
  4. LOXOPROFEN [Concomitant]
     Active Substance: LOXOPROFEN
  5. MOHRUS L [Concomitant]
     Active Substance: KETOPROFEN
  6. PROPETO [Concomitant]
  7. MAGMITT [Concomitant]
     Active Substance: MAGNESIUM OXIDE
  8. VITAMEDIN [Concomitant]
     Active Substance: CYANOCOBALAMIN\PYRIDOXINE HYDROCHLORIDE\THIAMINE
  9. TRACLEER [Suspect]
     Active Substance: BOSENTAN
     Dosage: 125 MG, BID
     Route: 048
     Dates: start: 20161220, end: 20161226
  10. PANTETHINE [Concomitant]
     Active Substance: PANTETHINE
  11. BERAPROST NA [Concomitant]
     Active Substance: BERAPROST SODIUM
  12. XYZAL [Concomitant]
     Active Substance: LEVOCETIRIZINE DIHYDROCHLORIDE
  13. TRACLEER [Suspect]
     Active Substance: BOSENTAN
     Dosage: 62.5 MG, BID
     Route: 048
     Dates: start: 20161227, end: 20170302
  14. LANSOPRAZOLE. [Concomitant]
     Active Substance: LANSOPRAZOLE
  15. TRAMCET [Concomitant]
     Active Substance: ACETAMINOPHEN\TRAMADOL
  16. ATORVASTATIN [Concomitant]
     Active Substance: ATORVASTATIN
  17. TRACLEER [Suspect]
     Active Substance: BOSENTAN
     Indication: SCLERODERMA ASSOCIATED DIGITAL ULCER
     Dosage: 62.5 MG, BID
     Route: 048
     Dates: start: 20160224, end: 20161205
  18. SARPOGRELATE HYDROCHLORIDE [Concomitant]
     Active Substance: SARPOGRELATE HYDROCHLORIDE

REACTIONS (12)
  - Urine output decreased [Fatal]
  - Gamma-glutamyltransferase increased [Recovered/Resolved]
  - Liver function test abnormal [Recovered/Resolved]
  - Blood urea increased [Fatal]
  - General physical health deterioration [Fatal]
  - Dialysis [Unknown]
  - Renal failure [Fatal]
  - Aspartate aminotransferase increased [Recovered/Resolved]
  - Blood creatinine increased [Fatal]
  - Liver disorder [Recovered/Resolved]
  - Blood alkaline phosphatase increased [Recovered/Resolved]
  - Drug-induced liver injury [Recovered/Resolved]

NARRATIVE: CASE EVENT DATE: 20160427
